FAERS Safety Report 18254616 (Version 2)
Quarter: 2020Q4

REPORT INFORMATION
  Report Type: Report from Study
  Country: US (occurrence: US)
  Receive Date: 20200910
  Receipt Date: 20201022
  Transmission Date: 20210113
  Serious: Yes (Hospitalization, Other)
  Sender: FDA-Public Use
  Company Number: US-BRISTOL-MYERS SQUIBB COMPANY-BMS-2020-072458

PATIENT
  Age: 50 Year
  Sex: Male
  Weight: 109.8 kg

DRUGS (4)
  1. NIVOLUMAB [Suspect]
     Active Substance: NIVOLUMAB
     Indication: BLADDER CANCER
     Dosage: 329 MILLIGRAM
     Route: 042
     Dates: start: 20200720, end: 20200720
  2. IPILIMUMAB [Suspect]
     Active Substance: IPILIMUMAB
     Indication: BLADDER CANCER
     Dosage: 110 MILLIGRAM
     Route: 042
     Dates: start: 20200720, end: 20200720
  3. CABOZANTINIB [Suspect]
     Active Substance: CABOZANTINIB
     Dosage: 1000 MILLIGRAM
     Route: 048
     Dates: end: 20200726
  4. CABOZANTINIB [Suspect]
     Active Substance: CABOZANTINIB
     Indication: BLADDER CANCER
     Dosage: 40 MILLIGRAM, QD
     Route: 048
     Dates: start: 20200720

REACTIONS (3)
  - Dehydration [Recovered/Resolved]
  - Colitis [Unknown]
  - Hypokalaemia [Recovered/Resolved]

NARRATIVE: CASE EVENT DATE: 20200727
